FAERS Safety Report 6112819-X (Version None)
Quarter: 2009Q1

REPORT INFORMATION
  Report Type: 
  Country: None (occurrence: None)
  Receive Date: 20090312
  Receipt Date: 20090226
  Transmission Date: 20090719
  Serious: Yes (Hospitalization)
  Sender: FDA-Public Use
  Company Number: JP-PFIZER INC-2009172764

PATIENT

DRUGS (7)
  1. VIAGRA [Suspect]
     Indication: PULMONARY HYPERTENSION
     Dosage: UNK
     Dates: start: 20040514, end: 20051024
  2. FLOLAN [Suspect]
     Dosage: UNK
     Route: 042
  3. TRACLEER [Suspect]
     Dosage: UNK
     Route: 048
  4. CORETEC [Concomitant]
  5. DOBUTAMINE HYDROCHLORIDE [Concomitant]
  6. MEXITIL [Concomitant]
  7. LANIRAPID [Concomitant]

REACTIONS (3)
  - CARDIAC FAILURE [None]
  - EOSINOPHILIC PNEUMONIA [None]
  - THYROIDITIS [None]
